FAERS Safety Report 7988900-7 (Version None)
Quarter: 2011Q4

REPORT INFORMATION
  Report Type: 
  Country: None (occurrence: None)
  Receive Date: 20111215
  Receipt Date: 20111215
  Transmission Date: 20120403
  Serious: No
  Sender: FDA-Public Use
  Company Number: None

PATIENT
  Age: 64 Year
  Sex: Male
  Weight: 99.7913 kg

DRUGS (1)
  1. ZETIA [Suspect]
     Dosage: 10 MG ONE A DAY
     Dates: start: 20110913, end: 20111003

REACTIONS (3)
  - ARTHRALGIA [None]
  - GAIT DISTURBANCE [None]
  - MYALGIA [None]
